FAERS Safety Report 24384964 (Version 2)
Quarter: 2024Q4

REPORT INFORMATION
  Report Type: Spontaneous
  Country: US (occurrence: US)
  Receive Date: 20241001
  Receipt Date: 20241104
  Transmission Date: 20250115
  Serious: No
  Sender: PFIZER
  Company Number: US-SEATTLE GENETICS-2021SGN06054

PATIENT

DRUGS (4)
  1. ADCETRIS [Suspect]
     Active Substance: BRENTUXIMAB VEDOTIN
     Dosage: CYCLIC
  2. ADRIAMYCIN [Suspect]
     Active Substance: DOXORUBICIN HYDROCHLORIDE
     Dosage: CYCLIC
  3. DACARBAZINE [Suspect]
     Active Substance: DACARBAZINE
     Dosage: CYCLIC
  4. VINBLASTINE [Suspect]
     Active Substance: VINBLASTINE
     Dosage: CYCLIC

REACTIONS (1)
  - Swelling of eyelid [Recovered/Resolved]
